FAERS Safety Report 10882785 (Version 2)
Quarter: 2015Q2

REPORT INFORMATION
  Report Type: Spontaneous
  Country: JP (occurrence: JP)
  Receive Date: 20150303
  Receipt Date: 20150526
  Transmission Date: 20150821
  Serious: Yes (Other)
  Sender: FDA-Public Use
  Company Number: JP-BAYER-2015-030063

PATIENT
  Age: 67 Year
  Sex: Female
  Weight: 54 kg

DRUGS (26)
  1. ARTIST [Concomitant]
     Active Substance: CARVEDILOL
     Indication: CARDIAC FAILURE
     Dosage: DAILY DOSE 2.5 MG
     Route: 048
     Dates: start: 20150122, end: 20150123
  2. LANTUS [Concomitant]
     Active Substance: INSULIN GLARGINE
     Indication: DIABETES MELLITUS
     Dosage: DAILY DOSE 12 U
     Route: 058
     Dates: start: 20150127, end: 20150128
  3. BAYASPIRIN [Suspect]
     Active Substance: ASPIRIN
     Indication: MYOCARDIAL INFARCTION
     Dosage: 100 MG, UNK
     Route: 048
     Dates: start: 20150115
  4. NICORANDIL [Suspect]
     Active Substance: NICORANDIL
     Indication: MYOCARDIAL INFARCTION
     Dosage: UNK
     Route: 048
     Dates: start: 20150116
  5. ALDACTONE [Suspect]
     Active Substance: SPIRONOLACTONE
     Indication: CARDIAC FAILURE
     Dosage: UNK
     Route: 048
     Dates: start: 20150123
  6. CRESTOR [Suspect]
     Active Substance: ROSUVASTATIN CALCIUM
     Indication: HYPERCHOLESTEROLAEMIA
     Dosage: UNK
     Route: 048
     Dates: start: 20150114, end: 20150323
  7. FUROSEMIDE. [Concomitant]
     Active Substance: FUROSEMIDE
     Indication: CARDIAC FAILURE
     Dosage: DAILY DOSE 20 MG
     Route: 048
     Dates: start: 20150210, end: 20150316
  8. ARTIST [Concomitant]
     Active Substance: CARVEDILOL
     Indication: CARDIAC FAILURE
     Dosage: 1.2 MG, QD
     Route: 048
     Dates: start: 20150119, end: 20150121
  9. LANTUS [Concomitant]
     Active Substance: INSULIN GLARGINE
     Indication: DIABETES MELLITUS
     Dosage: DAILY DOSE 14 U
     Route: 058
     Dates: start: 20150119, end: 20150119
  10. LANTUS [Concomitant]
     Active Substance: INSULIN GLARGINE
     Indication: DIABETES MELLITUS
     Dosage: DAILY DOSE 10 U
     Route: 058
     Dates: start: 20150120, end: 20150126
  11. LANTUS [Concomitant]
     Active Substance: INSULIN GLARGINE
     Indication: DIABETES MELLITUS
     Dosage: DAILY DOSE 14 U
     Route: 058
     Dates: start: 20150129
  12. FEBUXOSTAT. [Suspect]
     Active Substance: FEBUXOSTAT
     Indication: HYPERURICAEMIA
     Dosage: 10 MG, QD
     Route: 048
     Dates: start: 20150210, end: 20150323
  13. DIART [Suspect]
     Active Substance: AZOSEMIDE
     Indication: CARDIAC FAILURE
     Dosage: 60 MG, QD
     Route: 048
     Dates: start: 20150122, end: 20150323
  14. ARTIST [Concomitant]
     Active Substance: CARVEDILOL
     Indication: CARDIAC FAILURE
     Dosage: DAILY DOSE 5 MG
     Route: 048
     Dates: start: 20150124, end: 20150125
  15. ARTIST [Concomitant]
     Active Substance: CARVEDILOL
     Indication: CARDIAC FAILURE
     Dosage: DAILY DOSE 10 MG
     Route: 048
     Dates: start: 20150126
  16. NEXIUM [Suspect]
     Active Substance: ESOMEPRAZOLE MAGNESIUM
     Indication: GASTROOESOPHAGEAL REFLUX DISEASE
     Dosage: UNK
     Route: 048
     Dates: start: 20150114, end: 20150323
  17. BLOPRESS [Concomitant]
     Active Substance: CANDESARTAN CILEXETIL
     Indication: CARDIAC FAILURE
     Dosage: UNK
     Route: 048
     Dates: start: 20150303, end: 20150315
  18. FUROSEMIDE. [Concomitant]
     Active Substance: FUROSEMIDE
     Indication: CARDIAC FAILURE
     Dosage: DAILY DOSE 40 MG
     Route: 048
     Dates: start: 20150128, end: 20150129
  19. LANTUS [Concomitant]
     Active Substance: INSULIN GLARGINE
     Indication: DIABETES MELLITUS
     Dosage: DAILY DOSE 8 U
     Route: 058
     Dates: start: 20150115, end: 20150115
  20. LANTUS [Concomitant]
     Active Substance: INSULIN GLARGINE
     Indication: DIABETES MELLITUS
     Dosage: DAILY DOSE 12 U
     Route: 058
     Dates: start: 20150117, end: 20150118
  21. PLAVIX [Suspect]
     Active Substance: CLOPIDOGREL BISULFATE
     Indication: MYOCARDIAL INFARCTION
     Dosage: UNK
     Route: 048
     Dates: start: 20150115
  22. LANTUS [Concomitant]
     Active Substance: INSULIN GLARGINE
     Indication: DIABETES MELLITUS
     Dosage: DAILY DOSE 10 U
     Route: 058
     Dates: start: 20150116, end: 20150116
  23. FUROSEMIDE. [Concomitant]
     Active Substance: FUROSEMIDE
     Indication: CARDIAC FAILURE
     Dosage: DAILY DOSE 20 MG
     Route: 048
     Dates: start: 20150127, end: 20150127
  24. ARTIST [Concomitant]
     Active Substance: CARVEDILOL
     Indication: CARDIAC FAILURE
     Dosage: DAILY DOSE 1.25 MG
     Route: 048
     Dates: start: 20150304
  25. RENIVACE [Concomitant]
     Active Substance: ENALAPRIL
     Indication: CARDIAC FAILURE
     Dosage: UNK
     Route: 048
     Dates: start: 20150115, end: 20150302
  26. EPADEL [Concomitant]
     Active Substance: ICOSAPENT
     Indication: HYPERLIPIDAEMIA
     Dosage: 900 MG, QD
     Route: 048
     Dates: start: 20150203

REACTIONS (1)
  - Drug-induced liver injury [Recovering/Resolving]

NARRATIVE: CASE EVENT DATE: 20150316
